FAERS Safety Report 8249209-X (Version None)
Quarter: 2012Q1

REPORT INFORMATION
  Report Type: 
  Country: None (occurrence: None)
  Receive Date: 20120315
  Receipt Date: 20120307
  Transmission Date: 20120608
  Serious: Yes (Hospitalization, Other)
  Sender: FDA-Public Use
  Company Number: 2011027679

PATIENT
  Age: 47 Year
  Sex: Female
  Weight: 61.2356 kg

DRUGS (21)
  1. HIZENTRA [Suspect]
     Indication: IMMUNODEFICIENCY COMMON VARIABLE
     Dosage: SUBCUTANEOUS
     Route: 058
     Dates: start: 20101101
  2. ACETAMINOPHEN [Concomitant]
  3. SUDAFED 12 HOUR [Concomitant]
  4. LORAZEPAM [Concomitant]
  5. ACYCLOVIR [Concomitant]
  6. ASPIRIN [Concomitant]
  7. FENTANYL [Concomitant]
  8. NEXIUM [Concomitant]
  9. HIZENTRA [Suspect]
     Indication: IMMUNODEFICIENCY COMMON VARIABLE
     Dosage: SUBCUTANEOUS
     Route: 058
     Dates: start: 20101101
  10. LORAZEPAM [Concomitant]
  11. HIZENTRA [Suspect]
     Indication: IMMUNODEFICIENCY COMMON VARIABLE
     Dosage: 10 G 1X/WEEK, 4 GM (20 ML) ON 4 SITES OVER 1-2 HOURS SUBCUTANEOUS
     Route: 058
     Dates: start: 20120215, end: 20120215
  12. HIZENTRA [Suspect]
     Indication: IMMUNODEFICIENCY COMMON VARIABLE
     Dosage: 10 G 1X/WEEK, 2 GM (10 ML) ON 5 SITES OVER 1-2 HOURS SUBCUTANEOUS
     Route: 058
     Dates: start: 20120301
  13. HIZENTRA [Suspect]
     Indication: IMMUNODEFICIENCY COMMON VARIABLE
     Dosage: SUBCUTANEOUS
     Route: 058
     Dates: start: 20101101
  14. HIZENTRA [Suspect]
     Indication: IMMUNODEFICIENCY COMMON VARIABLE
     Dosage: SUBCUTANEOUS
     Route: 058
     Dates: start: 20101101
  15. HIZENTRA [Suspect]
     Indication: IMMUNODEFICIENCY COMMON VARIABLE
     Dosage: 10 G 1X/WEEK, 2 GM (10 ML) ON 5 SITES OVER 1-2 HOURS SUBCUTANEOUS
     Route: 058
     Dates: start: 20120215, end: 20120215
  16. HIZENTRA [Suspect]
     Indication: IMMUNODEFICIENCY COMMON VARIABLE
     Dosage: 4 GM (20 ML0 SUBCUTANEOUS
     Route: 058
     Dates: start: 20120301
  17. PREDNISONE TAB [Concomitant]
  18. HIZENTRA [Suspect]
     Indication: IMMUNODEFICIENCY COMMON VARIABLE
     Dosage: SUBCUTANEOUS
     Route: 058
     Dates: start: 20101101
  19. HIZENTRA [Suspect]
     Indication: IMMUNODEFICIENCY COMMON VARIABLE
     Dosage: SUBCUTANEOUS
     Route: 058
     Dates: start: 20101101
  20. MULTI-VITAMIN [Concomitant]
  21. OXYGEN (OXYGEN) [Concomitant]

REACTIONS (4)
  - BONE NEOPLASM MALIGNANT [None]
  - HEPATIC STEATOSIS [None]
  - SINUSITIS [None]
  - RESPIRATORY TRACT INFECTION [None]
